FAERS Safety Report 20983618 (Version 9)
Quarter: 2024Q2

REPORT INFORMATION
  Report Type: Spontaneous
  Country: CZ (occurrence: CZ)
  Receive Date: 20220620
  Receipt Date: 20240523
  Transmission Date: 20240716
  Serious: Yes (Hospitalization, Other)
  Sender: FDA-Public Use
  Company Number: CZ-CELLTRION INC.-2022CZ009256

PATIENT

DRUGS (33)
  1. RITUXIMAB [Suspect]
     Active Substance: RITUXIMAB
     Indication: Diffuse large B-cell lymphoma stage IV
     Dosage: 375 MG/M2, Q3W
     Route: 042
     Dates: start: 20220331, end: 20220331
  2. RITUXIMAB [Suspect]
     Active Substance: RITUXIMAB
     Dosage: C2D1
     Route: 042
     Dates: start: 20220428, end: 20220428
  3. CYCLOPHOSPHAMIDE [Suspect]
     Active Substance: CYCLOPHOSPHAMIDE
     Indication: Diffuse large B-cell lymphoma stage IV
     Dosage: 400 MG/M2, Q3W
     Route: 042
     Dates: start: 20220331, end: 20220331
  4. CYCLOPHOSPHAMIDE [Suspect]
     Active Substance: CYCLOPHOSPHAMIDE
     Dosage: C2D1
     Route: 042
     Dates: start: 20220428, end: 20220428
  5. VINCRISTINE SULFATE [Suspect]
     Active Substance: VINCRISTINE SULFATE
     Indication: Diffuse large B-cell lymphoma stage IV
     Dosage: 1 MG/M2, Q3W
     Route: 042
     Dates: start: 20220331, end: 20220331
  6. VINCRISTINE SULFATE [Suspect]
     Active Substance: VINCRISTINE SULFATE
     Dosage: C2D1
     Route: 042
     Dates: start: 20220428, end: 20220428
  7. DOXORUBICIN [Suspect]
     Active Substance: DOXORUBICIN
     Indication: Diffuse large B-cell lymphoma stage IV
     Dosage: 25 MG/M2, Q3W
     Route: 042
     Dates: start: 20220331, end: 20220331
  8. DOXORUBICIN [Suspect]
     Active Substance: DOXORUBICIN
     Dosage: C2D1
     Route: 042
     Dates: start: 20220428, end: 20220428
  9. PREDNISONE [Suspect]
     Active Substance: PREDNISONE
     Indication: Cytokine release syndrome
     Dosage: 100 MG, QD (MORNING), ADDITIONAL INFORMATION ON DRUG:ORAL SOLUTION
     Route: 048
     Dates: start: 20220331, end: 20220414
  10. PREDNISONE [Suspect]
     Active Substance: PREDNISONE
     Indication: Diffuse large B-cell lymphoma stage IV
     Dosage: 100 MG, QD (MORNING), ADDITIONAL INFORMATION ON DRUG:ORAL SOLUTION
     Route: 048
     Dates: start: 20220407, end: 20220410
  11. PREDNISONE [Suspect]
     Active Substance: PREDNISONE
     Dosage: 100 MG, QD (MORNING), ADDITIONAL INFORMATION ON DRUG:ORAL SOLUTION
     Route: 048
     Dates: start: 20220414, end: 20220417
  12. EPCORITAMAB [Suspect]
     Active Substance: EPCORITAMAB
     Indication: Diffuse large B-cell lymphoma stage IV
     Dosage: 0.16 MG, 1X TOTAL; ADDITIONAL INFORMATION: DUOBODY-CD3XCD20
     Route: 058
     Dates: start: 20220331, end: 20220331
  13. EPCORITAMAB [Suspect]
     Active Substance: EPCORITAMAB
     Dosage: 0.8 MG, 1X TOTAL; ADDITIONAL INFORMATION: DUOBODY-CD3XCD20
     Route: 058
     Dates: start: 20220407, end: 20220407
  14. EPCORITAMAB [Suspect]
     Active Substance: EPCORITAMAB
     Dosage: 48 MG, 1X TOTAL; ADDITIONAL INFORMATION: DUOBODY-CD3XCD20
     Route: 058
     Dates: start: 20220414, end: 20220414
  15. EPCORITAMAB [Suspect]
     Active Substance: EPCORITAMAB
     Dosage: 48 MG, QW; ADDITIONAL INFORMATION: DUOBODY-CD3XCD20
     Route: 058
     Dates: start: 20220428, end: 20220428
  16. POTASSIUM CHLORIDE [Concomitant]
     Active Substance: POTASSIUM CHLORIDE
     Dosage: 2000 MG
     Dates: start: 2000
  17. PANTOPRAZOLE SODIUM [Concomitant]
     Active Substance: PANTOPRAZOLE SODIUM
     Dosage: UNK
     Dates: start: 20220331
  18. ASPIRIN [Concomitant]
     Active Substance: ASPIRIN
     Dosage: 2000 MG
     Dates: start: 2000
  19. ACETAMINOPHEN [Concomitant]
     Active Substance: ACETAMINOPHEN
     Indication: Premedication
     Dosage: UNK
     Dates: start: 20220331, end: 20220414
  20. ACETAMINOPHEN [Concomitant]
     Active Substance: ACETAMINOPHEN
     Dosage: 1000 MG
     Route: 048
     Dates: start: 20220407, end: 20220407
  21. ACETAMINOPHEN [Concomitant]
     Active Substance: ACETAMINOPHEN
     Dosage: 500 MG
     Route: 048
     Dates: start: 20220414, end: 20220414
  22. CALCIUM CARBONATE [Concomitant]
     Active Substance: CALCIUM CARBONATE
     Dosage: UNK
     Dates: start: 20220331
  23. ATORVASTATIN [Concomitant]
     Active Substance: ATORVASTATIN
     Dosage: 2000 MG
     Dates: start: 2000
  24. FILGRASTIM [Concomitant]
     Active Substance: FILGRASTIM
     Dosage: UNK
     Dates: start: 20220410, end: 20220411
  25. SORBIFER DURULES [ASCORBIC ACID;FERROUS SULFATE] [Concomitant]
     Dosage: 2000 MG
     Dates: start: 2000
  26. ZYRTEC [Concomitant]
     Active Substance: CETIRIZINE HYDROCHLORIDE
     Indication: Premedication
     Dosage: UNK MG
     Dates: start: 20220331, end: 20220414
  27. ZYRTEC [Concomitant]
     Active Substance: CETIRIZINE HYDROCHLORIDE
     Dosage: 10 MG
     Route: 048
     Dates: start: 20220407, end: 20220407
  28. ZYRTEC [Concomitant]
     Active Substance: CETIRIZINE HYDROCHLORIDE
     Dosage: 10 MG
     Route: 048
     Dates: start: 20220414, end: 20220414
  29. SANGONA [Concomitant]
     Dosage: 2000 MG
     Dates: start: 2000
  30. BISEPTOL [Concomitant]
     Active Substance: SULFAMETHOXAZOLE\TRIMETHOPRIM
     Dosage: UNK
     Dates: start: 20220331, end: 20220822
  31. CEFUROXIME SODIUM [Concomitant]
     Active Substance: CEFUROXIME SODIUM
     Dosage: UNK, ADDITIONAL INFORMATION: ZINNAT
     Dates: start: 20220408, end: 20220412
  32. TAMSULOSIN [Concomitant]
     Active Substance: TAMSULOSIN
     Dosage: 2000 MG
     Dates: start: 2000
  33. GRANISETRON HYDROCHLORIDE [Concomitant]
     Active Substance: GRANISETRON HYDROCHLORIDE
     Dosage: UNK
     Dates: start: 20220401, end: 20220402

REACTIONS (8)
  - Diabetic metabolic decompensation [Recovered/Resolved]
  - Cytokine release syndrome [Recovered/Resolved]
  - Hypotension [Recovered/Resolved]
  - Hypoxia [Recovered/Resolved]
  - Pyrexia [Recovered/Resolved]
  - Urinary tract infection [Not Recovered/Not Resolved]
  - Breath sounds abnormal [Recovered/Resolved]
  - Dyspnoea [Recovered/Resolved]

NARRATIVE: CASE EVENT DATE: 20220414
